FAERS Safety Report 22284414 (Version 1)
Quarter: 2023Q2

REPORT INFORMATION
  Report Type: Spontaneous
  Country: NL (occurrence: NL)
  Receive Date: 20230504
  Receipt Date: 20230504
  Transmission Date: 20230722
  Serious: Yes (Other)
  Sender: FDA-Public Use
  Company Number: NL-ELI_LILLY_AND_COMPANY-NL202304014237

PATIENT
  Sex: Male

DRUGS (1)
  1. TALTZ [Suspect]
     Active Substance: IXEKIZUMAB
     Indication: Psoriasis
     Dosage: UNK UNK, UNKNOWN
     Route: 065
     Dates: start: 2021

REACTIONS (3)
  - Pemphigoid [Unknown]
  - Blister [Unknown]
  - Influenza like illness [Recovered/Resolved]
